FAERS Safety Report 4923596-X (Version None)
Quarter: 2006Q1

REPORT INFORMATION
  Report Type: 
  Country: None (occurrence: None)
  Receive Date: 20060227
  Receipt Date: 20040809
  Transmission Date: 20060701
  Serious: Yes (Death, Hospitalization)
  Sender: FDA-Public Use
  Company Number: GB-SANOFI-SYNTHELABO-F01200402390

PATIENT
  Sex: Male

DRUGS (11)
  1. OXALIPLATIN [Suspect]
     Indication: COLORECTAL CANCER METASTATIC
     Route: 042
  2. OXALIPLATIN [Suspect]
     Route: 042
     Dates: start: 20040817, end: 20040817
  3. CAPECITABINE [Suspect]
     Dosage: 1000 MG/M2 TWICE DAILY FROM D1 TO D14, Q3W
     Route: 048
     Dates: start: 20040719, end: 20040728
  4. CAPECITABINE [Suspect]
     Dosage: 1000 MG/M2 TWICE DAILY FROM D1 TO D14, Q3W
     Route: 048
     Dates: start: 20040817
  5. BEVACIZUMAB OR PLACEBO [Suspect]
     Route: 042
     Dates: start: 20040719, end: 20040719
  6. LIPITOR [Concomitant]
     Dosage: UNK
     Route: 065
  7. ASPIRIN [Concomitant]
     Dosage: UNK
     Route: 065
  8. PRAVASTATIN [Concomitant]
     Dosage: UNK
     Route: 065
  9. METOCLOPRAMIDE [Concomitant]
     Dosage: UNK
     Route: 065
  10. LANSOPRAZOLE [Concomitant]
     Dosage: UNK
     Route: 065
  11. LOPERAMIDE [Concomitant]
     Dosage: UNK
     Route: 065

REACTIONS (3)
  - ASTHENIA [None]
  - DEHYDRATION [None]
  - DIARRHOEA [None]
